FAERS Safety Report 9450018 (Version 2)
Quarter: 2013Q3

REPORT INFORMATION
  Report Type: Spontaneous
  Country: JP (occurrence: JP)
  Receive Date: 20130809
  Receipt Date: 20130913
  Transmission Date: 20140515
  Serious: Yes (Hospitalization)
  Sender: FDA-Public Use
  Company Number: JP-PFIZER INC-2013229520

PATIENT
  Sex: 0

DRUGS (1)
  1. MINIPRESS [Suspect]
     Dosage: 0.5 MG, THREE TIMES DAILY
     Route: 048

REACTIONS (1)
  - Urogenital disorder [Unknown]
